FAERS Safety Report 8310560-6 (Version None)
Quarter: 2012Q2

REPORT INFORMATION
  Report Type: 
  Country: None (occurrence: None)
  Receive Date: 20120425
  Receipt Date: 20120413
  Transmission Date: 20120825
  Serious: Yes (Hospitalization)
  Sender: FDA-Public Use
  Company Number: US-ROCHE-1059668

PATIENT
  Sex: Female
  Weight: 50.2 kg

DRUGS (5)
  1. MABTHERA [Suspect]
     Indication: LYMPHOMA
     Dosage: LAST DOSE PRIOR TO SAE: 13/JUL/2011
  2. IRON SULFATETHIAMIN COMPOUND TAB [Concomitant]
  3. BORTEZOMIB [Suspect]
     Indication: LYMPHOMA
     Dosage: LAST DOSE PRIOR TO SAE: 13/JUL/2011
  4. LISINOPRIL [Concomitant]
  5. ACYCLOVIR [Concomitant]

REACTIONS (2)
  - SYNCOPE [None]
  - DEHYDRATION [None]
